FAERS Safety Report 14938892 (Version 1)
Quarter: 2018Q2

REPORT INFORMATION
  Report Type: Spontaneous
  Country: CN (occurrence: CN)
  Receive Date: 20180525
  Receipt Date: 20180525
  Transmission Date: 20180711
  Serious: Yes (Other)
  Sender: FDA-Public Use
  Company Number: IND-CN-009507513-1805CHN008650

PATIENT
  Age: 47 Year
  Sex: Male
  Weight: 66 kg

DRUGS (5)
  1. SODIUM CHLORIDE. [Suspect]
     Active Substance: SODIUM CHLORIDE
     Indication: WOUND INFECTION
     Dosage: 100 ML, QD
     Route: 041
     Dates: start: 20180203, end: 20180206
  2. DUYIWEI [Suspect]
     Active Substance: HERBALS
     Indication: LIMB FRACTURE
     Dosage: 0.78 G, TID
     Route: 048
     Dates: start: 20180203, end: 20180206
  3. ARCOXIA [Suspect]
     Active Substance: ETORICOXIB
     Indication: LIMB FRACTURE
     Dosage: 60 MG, QD
     Route: 048
     Dates: start: 20180203, end: 20180207
  4. CEFTRIAXONE. [Suspect]
     Active Substance: CEFTRIAXONE
     Indication: WOUND INFECTION
     Dosage: 2 G, QD
     Route: 041
     Dates: start: 20180203, end: 20180206
  5. JIE GU QI LI PIAN [Suspect]
     Active Substance: HERBALS
     Indication: LIMB FRACTURE
     Dosage: 1.5 G, BID
     Route: 048
     Dates: start: 20180203, end: 20180206

REACTIONS (3)
  - Skin warm [Recovered/Resolved]
  - Pruritus [Recovered/Resolved]
  - Rash [Recovered/Resolved]

NARRATIVE: CASE EVENT DATE: 20180206
